FAERS Safety Report 19203398 (Version 1)
Quarter: 2021Q2

REPORT INFORMATION
  Report Type: Spontaneous
  Country: AR (occurrence: AR)
  Receive Date: 20210430
  Receipt Date: 20210430
  Transmission Date: 20210717
  Serious: Yes (Death, Life-Threatening, Hospitalization)
  Sender: FDA-Public Use
  Company Number: US-TEVA-2021-US-1904416

PATIENT
  Age: 85 Year
  Sex: Male

DRUGS (10)
  1. LOPINAVIR/RITONAVIR [Suspect]
     Active Substance: LOPINAVIR\RITONAVIR
     Indication: COVID-19
     Route: 065
     Dates: start: 2020, end: 2020
  2. HEPARIN [Concomitant]
     Active Substance: HEPARIN SODIUM
     Indication: ANTICOAGULANT THERAPY
     Route: 065
     Dates: start: 2020
  3. AZITHROMYCIN ANHYDROUS. [Concomitant]
     Active Substance: AZITHROMYCIN ANHYDROUS
     Indication: EVIDENCE BASED TREATMENT
     Route: 065
     Dates: start: 2020, end: 2020
  4. OSELTAMIVIR [Concomitant]
     Active Substance: OSELTAMIVIR
     Indication: EVIDENCE BASED TREATMENT
     Route: 065
     Dates: start: 2020, end: 2020
  5. VANCOMYCIN [Concomitant]
     Active Substance: VANCOMYCIN
  6. DEXAMETHASONE. [Suspect]
     Active Substance: DEXAMETHASONE
     Indication: STEROID THERAPY
     Dosage: 20 MILLIGRAM DAILY;
     Route: 065
     Dates: start: 2020
  7. HEPARIN [Concomitant]
     Active Substance: HEPARIN SODIUM
     Indication: DEEP VEIN THROMBOSIS
  8. CEFTRIAXONE. [Concomitant]
     Active Substance: CEFTRIAXONE
     Indication: EVIDENCE BASED TREATMENT
     Route: 065
     Dates: start: 2020, end: 2020
  9. IMIPENEM [Concomitant]
     Active Substance: IMIPENEM
  10. HYDROXYCHLOROQUINE [Suspect]
     Active Substance: HYDROXYCHLOROQUINE
     Indication: COVID-19
     Route: 065
     Dates: start: 2020, end: 2020

REACTIONS (17)
  - Renal tubular necrosis [Unknown]
  - Bronchopulmonary aspergillosis [Fatal]
  - Multiple organ dysfunction syndrome [Fatal]
  - Sepsis [Fatal]
  - Enterococcal infection [Recovered/Resolved]
  - Acinetobacter infection [Recovered/Resolved]
  - Off label use [Unknown]
  - Pneumonia [Fatal]
  - Aspergillus infection [Fatal]
  - Acute respiratory distress syndrome [Fatal]
  - Acute kidney injury [Unknown]
  - SARS-CoV-2 test positive [Fatal]
  - Staphylococcal infection [Recovered/Resolved]
  - Vascular device infection [Recovered/Resolved]
  - Viral load increased [Fatal]
  - Candida infection [Recovered/Resolved]
  - Metabolic acidosis [Unknown]

NARRATIVE: CASE EVENT DATE: 2020
